FAERS Safety Report 5832288-4 (Version None)
Quarter: 2008Q3

REPORT INFORMATION
  Report Type: 
  Country: None (occurrence: None)
  Receive Date: 20080804
  Receipt Date: 20080801
  Transmission Date: 20090109
  Serious: Yes (Congenital Anomaly)
  Sender: FDA-Public Use
  Company Number: A0716464A

PATIENT

DRUGS (4)
  1. COMBIVIR [Suspect]
     Indication: HIV INFECTION
     Dates: start: 20070328, end: 20070808
  2. SUSTIVA [Concomitant]
     Indication: HIV INFECTION
     Dates: start: 20070328
  3. KALETRA [Concomitant]
     Indication: HIV INFECTION
     Dates: start: 20070808
  4. TRUVADA [Concomitant]
     Indication: HIV INFECTION
     Dates: start: 20070808

REACTIONS (2)
  - DRUG EXPOSURE DURING PREGNANCY [None]
  - TALIPES [None]
